FAERS Safety Report 8966145 (Version 3)
Quarter: 2013Q4

REPORT INFORMATION
  Report Type: Spontaneous
  Country: AR (occurrence: AR)
  Receive Date: 20121217
  Receipt Date: 20131014
  Transmission Date: 20140711
  Serious: Yes (Hospitalization)
  Sender: FDA-Public Use
  Company Number: AR-AMGEN-ARGSP2012080332

PATIENT
  Age: 74 Year
  Sex: Male

DRUGS (2)
  1. ENBREL [Suspect]
     Indication: RHEUMATOID ARTHRITIS
     Dosage: 50 MG, EVERY 15 DAYS
     Route: 065
     Dates: start: 20041012
  2. ASPIRINA [Concomitant]
     Dosage: UNK

REACTIONS (3)
  - Arrhythmia [Recovered/Resolved]
  - Blood test abnormal [Not Recovered/Not Resolved]
  - Coagulopathy [Recovered/Resolved]
